FAERS Safety Report 22589766 (Version 2)
Quarter: 2023Q2

REPORT INFORMATION
  Report Type: Spontaneous
  Country: US (occurrence: US)
  Receive Date: 20230612
  Receipt Date: 20230615
  Transmission Date: 20230722
  Serious: Yes (Other)
  Sender: FDA-Public Use
  Company Number: US-PFIZER INC-PV202300102078

PATIENT
  Age: 87 Year
  Sex: Female
  Weight: 59.864 kg

DRUGS (2)
  1. XALKORI [Suspect]
     Active Substance: CRIZOTINIB
     Indication: Non-small cell lung cancer stage IV
     Dosage: 250 MG, 2X/DAY
     Route: 048
  2. ELIQUIS [Suspect]
     Active Substance: APIXABAN
     Indication: Pulmonary embolism
     Dosage: UNK
     Route: 048

REACTIONS (6)
  - Conjunctival haemorrhage [Unknown]
  - Weight decreased [Unknown]
  - Nausea [Unknown]
  - Vomiting [Unknown]
  - Vision blurred [Unknown]
  - Diarrhoea [Recovering/Resolving]
